FAERS Safety Report 21172123 (Version 1)
Quarter: 2022Q3

REPORT INFORMATION
  Report Type: Spontaneous
  Country: US (occurrence: None)
  Receive Date: 20220803
  Receipt Date: 20220803
  Transmission Date: 20221026
  Serious: Yes (Other)
  Sender: FDA-Public Use
  Company Number: None

PATIENT
  Sex: 0

DRUGS (1)
  1. OSIMERTINIB [Suspect]
     Active Substance: OSIMERTINIB

REACTIONS (5)
  - Rash [None]
  - Pruritus [None]
  - Peripheral swelling [None]
  - Manufacturing issue [None]
  - Product contamination [None]

NARRATIVE: CASE EVENT DATE: 20220803
